FAERS Safety Report 8993219 (Version 5)
Quarter: 2014Q3

REPORT INFORMATION
  Report Type: Spontaneous
  Country: GB (occurrence: GB)
  Receive Date: 20130102
  Receipt Date: 20140922
  Transmission Date: 20150326
  Serious: Yes (Other)
  Sender: FDA-Public Use
  Company Number: GB-BAYER-2012-134451

PATIENT
  Age: 22 Year
  Sex: Female

DRUGS (3)
  1. DIFLUCAN [Concomitant]
     Active Substance: FLUCONAZOLE
     Dosage: UNK UNK, QD
  2. CANESTEN CREAM COMBI INTERNAL + EXTERNAL CREAMS [Suspect]
     Active Substance: CLOTRIMAZOLE
     Indication: CANDIDA INFECTION
     Dosage: UNK
     Dates: start: 20121220, end: 20121220
  3. CANESTEN CREAM COMBI INTERNAL + EXTERNAL CREAMS [Suspect]
     Active Substance: CLOTRIMAZOLE
     Indication: CANDIDA INFECTION
     Dosage: UNK
     Dates: start: 20121220

REACTIONS (7)
  - Device difficult to use [Recovered/Resolved]
  - Tremor [Recovered/Resolved]
  - Nausea [Recovered/Resolved]
  - Back pain [None]
  - Abdominal pain upper [None]
  - Vaginismus [None]
  - Vulvovaginal pain [Not Recovered/Not Resolved]

NARRATIVE: CASE EVENT DATE: 20121220
